FAERS Safety Report 9722719 (Version 1)
Quarter: 2013Q4

REPORT INFORMATION
  Report Type: Report from Study
  Country: TN (occurrence: TN)
  Receive Date: 20131202
  Receipt Date: 20131202
  Transmission Date: 20140711
  Serious: Yes (Other)
  Sender: FDA-Public Use
  Company Number: TN-PFIZER INC-2013337456

PATIENT
  Age: 39 Year
  Sex: Male

DRUGS (6)
  1. RIFAMPICIN [Suspect]
     Indication: TUBERCULOSIS
     Dosage: UNK
  2. ISONIAZID [Suspect]
     Indication: TUBERCULOSIS
     Dosage: UNK
  3. ETHAMBUTOL [Suspect]
     Indication: TUBERCULOSIS
     Dosage: UNK
  4. PYRAZINAMIDE [Suspect]
     Indication: TUBERCULOSIS
     Dosage: UNK
  5. AZATHIOPRINE [Concomitant]
     Indication: IMMUNOSUPPRESSION
     Dosage: UNK
  6. ANTILYMPHOCYTE SERUM [Concomitant]
     Indication: KIDNEY TRANSPLANT REJECTION
     Dosage: UNK

REACTIONS (1)
  - Transplant dysfunction [Not Recovered/Not Resolved]
